FAERS Safety Report 16140497 (Version 1)
Quarter: 2019Q2

REPORT INFORMATION
  Report Type: Spontaneous
  Country: US (occurrence: US)
  Receive Date: 20190401
  Receipt Date: 20190401
  Transmission Date: 20190711
  Serious: No
  Sender: FDA-Public Use
  Company Number: US-SEPTODONT-201804880

PATIENT

DRUGS (3)
  1. GRAHAM LIDOCAINE 1:100 RED 50 [Suspect]
     Active Substance: EPINEPHRINE\LIDOCAINE
     Indication: DENTAL LOCAL ANAESTHESIA
     Route: 004
     Dates: start: 20181017
  2. GRAHAM LIDOCAINE 1:100 RED 50 [Suspect]
     Active Substance: EPINEPHRINE\LIDOCAINE
     Indication: DENTAL LOCAL ANAESTHESIA
     Route: 004
     Dates: start: 20181017
  3. GRAHAM LIDOCAINE 1:100 RED 50 [Suspect]
     Active Substance: EPINEPHRINE\LIDOCAINE
     Indication: DENTAL LOCAL ANAESTHESIA
     Route: 004
     Dates: start: 20181017

REACTIONS (1)
  - Drug ineffective [Unknown]

NARRATIVE: CASE EVENT DATE: 20181017
